FAERS Safety Report 12501656 (Version 3)
Quarter: 2019Q1

REPORT INFORMATION
  Report Type: Spontaneous
  Country: CH (occurrence: CH)
  Receive Date: 20160627
  Receipt Date: 20190222
  Transmission Date: 20190417
  Serious: Yes (Other)
  Sender: FDA-Public Use
  Company Number: CH-009507513-1606CHE012509

PATIENT
  Age: 74 Year
  Sex: Male

DRUGS (5)
  1. AMIODARONE [Interacting]
     Active Substance: AMIODARONE
     Indication: ATRIAL FIBRILLATION
     Dosage: 200 MG PER DAY, MAINTENANCE THERAPY
     Route: 048
  2. HEPARIN [Concomitant]
     Active Substance: HEPARIN SODIUM
  3. FLOXACILLIN [Concomitant]
     Active Substance: FLUCLOXACILLIN
     Indication: SEPSIS
  4. AMIODARONE [Interacting]
     Active Substance: AMIODARONE
     Indication: TACHYCARDIA
     Dosage: 10 G CUMULATIVE UNTIL THE NINTH DAY
  5. SIMVASTATIN. [Suspect]
     Active Substance: SIMVASTATIN
     Indication: DISEASE RISK FACTOR
     Dosage: 40 MG, QD
     Route: 048

REACTIONS (3)
  - Acute kidney injury [Recovered/Resolved]
  - Drug interaction [Recovered/Resolved]
  - Rhabdomyolysis [Recovered/Resolved]
